FAERS Safety Report 24257879 (Version 1)
Quarter: 2024Q3

REPORT INFORMATION
  Report Type: Spontaneous
  Country: CN (occurrence: CN)
  Receive Date: 20240828
  Receipt Date: 20240828
  Transmission Date: 20241017
  Serious: Yes (Hospitalization)
  Sender: MYLAN
  Company Number: CN-MYLANLABS-2024M1078289

PATIENT
  Age: 79 Year
  Sex: Male

DRUGS (6)
  1. NORVASC [Suspect]
     Active Substance: AMLODIPINE BESYLATE
     Indication: Hypertension
     Dosage: 2.5 MILLIGRAM, QD (ONCE A DAY)
     Route: 048
     Dates: start: 20240721, end: 20240724
  2. NORVASC [Suspect]
     Active Substance: AMLODIPINE BESYLATE
     Indication: Coronary artery disease
  3. ALIROCUMAB [Suspect]
     Active Substance: ALIROCUMAB
     Indication: Arteriosclerosis coronary artery
     Dosage: 75 MILLIGRAM, QD
     Route: 058
     Dates: start: 20240721, end: 20240721
  4. INDOBUFEN [Suspect]
     Active Substance: INDOBUFEN
     Indication: Product used for unknown indication
     Dosage: 0.1 GRAM, BID (MORNING AND EVENING)
     Route: 065
     Dates: start: 20240721
  5. PANTOPRAZOLE SODIUM [Suspect]
     Active Substance: PANTOPRAZOLE SODIUM
     Indication: Product used for unknown indication
     Dosage: 40 MILLIGRAM, QD (ONCE A DAY)
     Route: 065
     Dates: start: 20240721
  6. BISOPROLOL FUMARATE [Suspect]
     Active Substance: BISOPROLOL FUMARATE
     Indication: Product used for unknown indication
     Dosage: 2.5 MILLIGRAM, QD (ONCE A DAY)
     Route: 065
     Dates: start: 20240721

REACTIONS (1)
  - Blood creatine phosphokinase increased [Recovering/Resolving]

NARRATIVE: CASE EVENT DATE: 20240722
